FAERS Safety Report 13947012 (Version 3)
Quarter: 2017Q4

REPORT INFORMATION
  Report Type: Spontaneous
  Country: FR (occurrence: FR)
  Receive Date: 20170907
  Receipt Date: 20171025
  Transmission Date: 20180320
  Serious: Yes (Other)
  Sender: FDA-Public Use
  Company Number: FR-MERCK KGAA-2025731

PATIENT
  Age: 89 Year
  Sex: Female
  Weight: 78 kg

DRUGS (5)
  1. DAFALGAN [Concomitant]
     Active Substance: ACETAMINOPHEN
  2. EZETROL [Concomitant]
     Active Substance: EZETIMIBE
  3. NOVOTHYROX [Suspect]
     Active Substance: LEVOTHYROXINE SODIUM
  4. NOVOTHYROX [Suspect]
     Active Substance: LEVOTHYROXINE SODIUM
     Indication: HYPOTHYROIDISM
     Dates: start: 201705
  5. MOGADON [Concomitant]
     Active Substance: NITRAZEPAM

REACTIONS (8)
  - Vertigo [Recovering/Resolving]
  - Constipation [Recovering/Resolving]
  - Dizziness [Unknown]
  - Tachycardia [Recovered/Resolved]
  - Fatigue [Recovered/Resolved]
  - Blood thyroid stimulating hormone decreased [Not Recovered/Not Resolved]
  - Hyperhidrosis [Unknown]
  - Muscle spasms [Unknown]

NARRATIVE: CASE EVENT DATE: 201707
